FAERS Safety Report 4366759-7 (Version None)
Quarter: 2004Q2

REPORT INFORMATION
  Report Type: 
  Country: None (occurrence: None)
  Receive Date: 20040526
  Receipt Date: 20040526
  Transmission Date: 20050107
  Serious: Yes (Other)
  Sender: FDA-Public Use
  Company Number: None

PATIENT
  Age: 63 Year
  Sex: Male
  Weight: 78 kg

DRUGS (6)
  1. OXYBUTYNIN [Suspect]
  2. ALBUTEROL SULFATE AND IPRATROPIUM BROMIDE [Concomitant]
  3. NAPROXEN [Concomitant]
  4. OXYCODONE 5 MG/ACETAMINOPHEN [Concomitant]
  5. KETOROLAC TROMETH [Concomitant]
  6. TERAZOSIN HCL [Concomitant]

REACTIONS (1)
  - CONSTIPATION [None]
